FAERS Safety Report 21583754 (Version 9)
Quarter: 2023Q2

REPORT INFORMATION
  Report Type: Spontaneous
  Country: JP (occurrence: JP)
  Receive Date: 20221111
  Receipt Date: 20230528
  Transmission Date: 20230721
  Serious: Yes (Hospitalization)
  Sender: FDA-Public Use
  Company Number: JP-ARGENX-2022-ARGX-JP002363

PATIENT
  Age: 51 Year
  Sex: Male

DRUGS (29)
  1. VYVGART [Suspect]
     Active Substance: EFGARTIGIMOD ALFA-FCAB
     Indication: Myasthenia gravis
     Dosage: 800 MG, 1/WEEK
     Route: 041
     Dates: start: 20220526, end: 20221103
  2. VYVGART [Suspect]
     Active Substance: EFGARTIGIMOD ALFA-FCAB
     Dosage: UNK
     Route: 041
  3. VYVGART [Suspect]
     Active Substance: EFGARTIGIMOD ALFA-FCAB
     Dosage: UNK
     Route: 041
  4. VYVGART [Suspect]
     Active Substance: EFGARTIGIMOD ALFA-FCAB
     Dosage: UNK
     Route: 041
  5. VYVGART [Suspect]
     Active Substance: EFGARTIGIMOD ALFA-FCAB
     Dosage: UNK
     Route: 041
  6. PREDONINE [Concomitant]
     Active Substance: PREDNISOLONE
     Indication: Myasthenia gravis
     Dosage: 11-20 MG
     Route: 048
  7. PREDONINE [Concomitant]
     Active Substance: PREDNISOLONE
     Dosage: 20 MG
     Route: 048
  8. PREDONINE [Concomitant]
     Active Substance: PREDNISOLONE
     Dosage: 15 MG
     Route: 048
  9. PREDONINE [Concomitant]
     Active Substance: PREDNISOLONE
     Dosage: 12.5 MG
     Route: 048
  10. CYCLOSPORINE [Concomitant]
     Active Substance: CYCLOSPORINE
     Indication: Myasthenia gravis
     Dosage: 400 MG
     Route: 065
  11. CYCLOSPORINE [Concomitant]
     Active Substance: CYCLOSPORINE
     Dosage: 300 MG
     Route: 065
  12. CYCLOSPORINE [Concomitant]
     Active Substance: CYCLOSPORINE
     Dosage: 400 MG
     Route: 065
  13. PYRIDOSTIGMINE [Concomitant]
     Active Substance: PYRIDOSTIGMINE
     Indication: Myasthenia gravis
     Dosage: 180 MG
     Route: 016
  14. NEORAL [Concomitant]
     Active Substance: CYCLOSPORINE
     Indication: Product used for unknown indication
     Dosage: 8 DF
     Route: 048
  15. PREGABALIN [Concomitant]
     Active Substance: PREGABALIN
     Indication: Product used for unknown indication
     Dosage: 50 MG
     Route: 048
  16. VALSARTAN [Concomitant]
     Active Substance: VALSARTAN
     Indication: Product used for unknown indication
     Dosage: 80 MG
     Route: 048
  17. DULOXETINE [Concomitant]
     Active Substance: DULOXETINE
     Indication: Product used for unknown indication
     Dosage: 2 DF
     Route: 048
  18. DULOXETINE [Concomitant]
     Active Substance: DULOXETINE
     Dosage: 60 MG
     Route: 065
  19. VONOPRAZAN FUMARATE [Concomitant]
     Active Substance: VONOPRAZAN FUMARATE
     Indication: Product used for unknown indication
     Dosage: 10 MG
     Route: 065
  20. RAMELTEON [Concomitant]
     Active Substance: RAMELTEON
     Indication: Product used for unknown indication
     Dosage: 8 MG
     Route: 065
  21. DAYVIGO [Concomitant]
     Active Substance: LEMBOREXANT
     Indication: Product used for unknown indication
     Dosage: 2.5 MG, TID
     Route: 048
  22. SULFAMETHOXAZOLE\TRIMETHOPRIM [Concomitant]
     Active Substance: SULFAMETHOXAZOLE\TRIMETHOPRIM
     Indication: Product used for unknown indication
     Dosage: UNK
     Route: 048
  23. DIPHENHYDRAMINE [Concomitant]
     Active Substance: DIPHENHYDRAMINE
     Indication: Product used for unknown indication
     Dosage: 3 DF
     Route: 048
  24. TRIAZOLAM [Concomitant]
     Active Substance: TRIAZOLAM
     Indication: Product used for unknown indication
     Dosage: 15 MG
     Route: 048
  25. BROTIZOLAM [Concomitant]
     Active Substance: BROTIZOLAM
     Indication: Product used for unknown indication
     Dosage: 0.5 MG
     Route: 048
  26. PITAVASTATIN CALCIUM [Concomitant]
     Active Substance: PITAVASTATIN CALCIUM
     Indication: Product used for unknown indication
     Dosage: 2 MG
     Route: 048
  27. METFORMIN HYDROCHLORIDE [Concomitant]
     Active Substance: METFORMIN HYDROCHLORIDE
     Indication: Product used for unknown indication
     Dosage: 1000 MG
     Route: 048
  28. EMPAGLIFLOZIN [Concomitant]
     Active Substance: EMPAGLIFLOZIN
     Indication: Product used for unknown indication
     Dosage: 10 MG
     Route: 048
  29. PROBUCOLIN [Concomitant]
     Indication: Product used for unknown indication
     Dosage: 500 MG
     Route: 048

REACTIONS (4)
  - Diverticulum intestinal haemorrhagic [Recovered/Resolved]
  - Haematochezia [Recovered/Resolved]
  - Pigmentation disorder [Not Recovered/Not Resolved]
  - Therapeutic product effect delayed [Unknown]

NARRATIVE: CASE EVENT DATE: 20221107
